FAERS Safety Report 6236988-6 (Version None)
Quarter: 2009Q2

REPORT INFORMATION
  Report Type: 
  Country: None (occurrence: None)
  Receive Date: 20090619
  Receipt Date: 20090310
  Transmission Date: 20091009
  Serious: No
  Sender: FDA-Public Use
  Company Number: US-ASTRAZENECA-2009UW06411

PATIENT
  Age: 16161 Day
  Sex: Female
  Weight: 68 kg

DRUGS (10)
  1. SYMBICORT [Suspect]
     Indication: CHRONIC OBSTRUCTIVE PULMONARY DISEASE
     Route: 055
     Dates: start: 20071001
  2. SYMBICORT [Suspect]
     Route: 055
  3. TOPROL-XL [Concomitant]
  4. ALDACTONE [Concomitant]
  5. ESTROVEN [Concomitant]
  6. RELAFEN [Concomitant]
  7. PAMINE FORTE [Concomitant]
  8. ACIPHEX [Concomitant]
  9. XOPENEX [Concomitant]
  10. PLAQUENIL [Concomitant]

REACTIONS (2)
  - DRUG INEFFECTIVE [None]
  - UPPER RESPIRATORY TRACT INFECTION [None]
